FAERS Safety Report 24212623 (Version 2)
Quarter: 2024Q3

REPORT INFORMATION
  Report Type: Report from Study
  Country: US (occurrence: US)
  Receive Date: 20240815
  Receipt Date: 20240821
  Transmission Date: 20241017
  Serious: Yes (Other)
  Sender: ABBVIE
  Company Number: US-ABBVIE-5880152

PATIENT
  Sex: Female

DRUGS (1)
  1. RINVOQ [Suspect]
     Active Substance: UPADACITINIB
     Indication: Product used for unknown indication
     Dosage: PAUSED TAKING RINVOQ FIVE TO SIX DAYS BEFORE AND AFTER THE PROCEDURE
     Route: 048
     Dates: start: 2023

REACTIONS (1)
  - Medical procedure [Recovered/Resolved]
